FAERS Safety Report 8487736-0 (Version None)
Quarter: 2012Q3

REPORT INFORMATION
  Report Type: 
  Country: None (occurrence: None)
  Receive Date: 20120705
  Receipt Date: 20120628
  Transmission Date: 20120928
  Serious: Yes (Hospitalization, Other)
  Sender: FDA-Public Use
  Company Number: US-AMGEN-USASP2012040258

PATIENT
  Age: 57 Year
  Sex: Female

DRUGS (1)
  1. ENBREL [Suspect]
     Indication: PSORIATIC ARTHROPATHY
     Dosage: 50 MG, 2 TIMES/WK
     Dates: start: 20010321, end: 20120620

REACTIONS (16)
  - PRODUCTIVE COUGH [None]
  - FUNGAL INFECTION [None]
  - NASOPHARYNGITIS [None]
  - CARDIAC PACEMAKER BATTERY REPLACEMENT [None]
  - SCIATICA [None]
  - DYSPAREUNIA [None]
  - SINUS CONGESTION [None]
  - FATIGUE [None]
  - PAIN [None]
  - PSORIATIC ARTHROPATHY [None]
  - FALL [None]
  - MOBILITY DECREASED [None]
  - HEADACHE [None]
  - DEVICE DISLOCATION [None]
  - ATRIAL FIBRILLATION [None]
  - SKIN ATROPHY [None]
